FAERS Safety Report 22107677 (Version 1)
Quarter: 2023Q1

REPORT INFORMATION
  Report Type: Spontaneous
  Country: JP (occurrence: JP)
  Receive Date: 20230317
  Receipt Date: 20230317
  Transmission Date: 20230418
  Serious: Yes (Other)
  Sender: FDA-Public Use
  Company Number: JP-UCBJ-CD202302696UCBPHAPROD

PATIENT
  Age: 8 Decade
  Sex: Male

DRUGS (2)
  1. LEVETIRACETAM [Suspect]
     Active Substance: LEVETIRACETAM
     Indication: Epilepsy
     Dosage: UNK
     Route: 048
  2. FOSPHENYTOIN SODIUM HEPTAHYDRATE [Concomitant]
     Active Substance: FOSPHENYTOIN SODIUM HEPTAHYDRATE
     Indication: Epilepsy
     Dosage: UNK

REACTIONS (1)
  - Altered state of consciousness [Unknown]
